FAERS Safety Report 21729897 (Version 1)
Quarter: 2022Q4

REPORT INFORMATION
  Report Type: Spontaneous
  Country: FR (occurrence: FR)
  Receive Date: 20221214
  Receipt Date: 20221214
  Transmission Date: 20230112
  Serious: Yes (Death, Other)
  Sender: FDA-Public Use
  Company Number: FR-BAXTER-2022BAX026216

PATIENT
  Age: 84 Year
  Sex: Female

DRUGS (6)
  1. DEXAMETHASONE [Suspect]
     Active Substance: DEXAMETHASONE
     Indication: Product used for unknown indication
     Dosage: 20 MG/DOSE 2 DOSE(S)/WEEK 2 WEEK(S)/CYCLE, TREATMENT LINE NUMBER 1, TREATMENT DURATION: 3.5 MONTHS
     Route: 065
     Dates: end: 20180209
  2. DEXAMETHASONE [Suspect]
     Active Substance: DEXAMETHASONE
     Dosage: 20 MG/DOSE, TREATMENT LINE NUMBER 3, TREATMENT DURATION: 10.9 MONTHS
     Route: 065
  3. CYCLOPHOSPHAMIDE [Suspect]
     Active Substance: CYCLOPHOSPHAMIDE
     Indication: Product used for unknown indication
     Dosage: 500 MG/DOSE, TREATMENT LINE NUMBER 3, TREATMENT DURATION: 10.9 MONTHS
     Route: 065
  4. CYCLOPHOSPHAMIDE [Suspect]
     Active Substance: CYCLOPHOSPHAMIDE
     Dosage: 1300 MG/DOSE 1 DOSE(S)/WEEK 1 WEEK(S)/CYCLE, TREATMENT LINE NUMBER 1, TREATMENT DURATION: 3.5 MONTHS
     Route: 065
     Dates: end: 20180209
  5. BORTEZOMIB [Suspect]
     Active Substance: BORTEZOMIB
     Indication: Product used for unknown indication
     Dosage: 2.3 MG/DOSE 2 DOSE(S)/WEEK 2 WEEK(S)/CYCLE, TREATMENT LINE NUMBER 1, TREATMENT DURATION: 3.5 MONTHS
     Route: 065
     Dates: end: 20180209
  6. BORTEZOMIB [Suspect]
     Active Substance: BORTEZOMIB
     Dosage: 1 MG/M2/DOSE D1 AND D4, TREATMENT LINE NUMBER 3, TREATMENT DURATION: 10.9 MONTHS
     Route: 065

REACTIONS (3)
  - Death [Fatal]
  - Poisoning [Unknown]
  - Drug ineffective [Unknown]

NARRATIVE: CASE EVENT DATE: 20191211
